FAERS Safety Report 14068941 (Version 1)
Quarter: 2017Q4

REPORT INFORMATION
  Report Type: Spontaneous
  Country: US (occurrence: US)
  Receive Date: 20171010
  Receipt Date: 20171010
  Transmission Date: 20180321
  Serious: No
  Sender: FDA-Public Use
  Company Number: US-PFIZER INC-2017436939

PATIENT
  Sex: Male

DRUGS (2)
  1. CIALIS [Interacting]
     Active Substance: TADALAFIL
  2. VIAGRA [Suspect]
     Active Substance: SILDENAFIL CITRATE
     Dosage: TOOK A 100 MG PILL LAST NIGHT
     Dates: start: 20171005

REACTIONS (2)
  - Drug interaction [Unknown]
  - Drug effect incomplete [Unknown]

NARRATIVE: CASE EVENT DATE: 201710
